FAERS Safety Report 9520850 (Version 1)
Quarter: 2013Q3

REPORT INFORMATION
  Report Type: Spontaneous
  Country: US (occurrence: None)
  Receive Date: 20130904
  Receipt Date: 20130904
  Transmission Date: 20140515
  Serious: Yes (Death)
  Sender: FDA-Public Use
  Company Number: 2013037738

PATIENT
  Age: 56 Year
  Sex: Male

DRUGS (11)
  1. ALBUMIN [Suspect]
     Indication: SEPTIC SHOCK
  2. HYDRALAZINE (HYDRALAZINE) [Concomitant]
  3. FUROSEMIDE (FUROSEMIDE) [Concomitant]
  4. LEVOTHYROXINE (LEVOTHYROXINE) [Concomitant]
  5. LISINOPRIL (LISINOPRIL) [Concomitant]
  6. HYDROCHLOROTHIAZIDE (HYDROCHLOROTHIAZIDE) [Concomitant]
  7. ATORVASTATIN (ATORVASTATIN) [Concomitant]
  8. AMIODARONE (AMIODARONE) [Concomitant]
  9. DOCETAXEL (DOCETAXEL) [Concomitant]
  10. CISPLATIN (CISPLATIN) [Concomitant]
  11. 5-FLUOROURACIL (FLUOROURACIL0 [Concomitant]

REACTIONS (5)
  - Respiratory distress [None]
  - Splenomegaly [None]
  - Lactic acidosis [None]
  - Hypotension [None]
  - Histiocytosis haematophagic [None]
